FAERS Safety Report 6739287-9 (Version None)
Quarter: 2010Q2

REPORT INFORMATION
  Report Type: 
  Country: None (occurrence: None)
  Receive Date: 20100525
  Receipt Date: 20100512
  Transmission Date: 20101027
  Serious: Yes (Other)
  Sender: FDA-Public Use
  Company Number: PHFR2010GB00501

PATIENT
  Sex: Female

DRUGS (2)
  1. CLOZARIL [Suspect]
     Indication: SCHIZOPHRENIA
     Dosage: UNK
     Route: 048
     Dates: start: 19920722, end: 20100429
  2. CHLORPROMAZINE [Concomitant]
     Dosage: UNK

REACTIONS (4)
  - HERPES ZOSTER [None]
  - MENTAL IMPAIRMENT [None]
  - NEUTROPENIA [None]
  - VEIN DISORDER [None]
